FAERS Safety Report 15790197 (Version 6)
Quarter: 2020Q1

REPORT INFORMATION
  Report Type: Spontaneous
  Country: US (occurrence: US)
  Receive Date: 20190104
  Receipt Date: 20200330
  Transmission Date: 20200409
  Serious: Yes (Hospitalization)
  Sender: FDA-Public Use
  Company Number: US-SA-2019SA001500

PATIENT
  Age: 52 Year
  Sex: Female

DRUGS (2)
  1. DUPIXENT [Suspect]
     Active Substance: DUPILUMAB
     Dosage: 300 MG/2 ML, QOW
     Route: 058
     Dates: start: 201810
  2. DUPIXENT [Suspect]
     Active Substance: DUPILUMAB
     Indication: DERMATITIS ATOPIC
     Dosage: 600 MG, 1X
     Route: 058
     Dates: start: 201810, end: 201810

REACTIONS (6)
  - Hypersensitivity [Unknown]
  - Dyspnoea [Unknown]
  - Haemorrhoids [Unknown]
  - Injection site bruising [Unknown]
  - Fatigue [Unknown]
  - Elective surgery [Unknown]

NARRATIVE: CASE EVENT DATE: 201906
